FAERS Safety Report 4285728-9 (Version None)
Quarter: 2004Q1

REPORT INFORMATION
  Report Type: 
  Country: None (occurrence: None)
  Receive Date: 20040203
  Receipt Date: 20031028
  Transmission Date: 20041129
  Serious: Yes (Death, Hospitalization, Other)
  Sender: FDA-Public Use
  Company Number: 2003US005375

PATIENT
  Age: 43 Year
  Sex: Male
  Weight: 93 kg

DRUGS (9)
  1. PROGRAF [Suspect]
     Indication: HEART TRANSPLANT
     Dosage: SEE IMAGE
     Route: 048
     Dates: start: 20031008, end: 20031008
  2. PROGRAF [Suspect]
     Indication: HEART TRANSPLANT
     Dosage: SEE IMAGE
     Route: 048
     Dates: start: 20031009, end: 20031009
  3. PROGRAF [Suspect]
     Indication: HEART TRANSPLANT
     Dosage: SEE IMAGE
     Route: 048
     Dates: start: 20031011, end: 20031013
  4. PROGRAF [Suspect]
     Indication: HEART TRANSPLANT
     Dosage: SEE IMAGE
     Route: 048
     Dates: start: 20030523
  5. PROGRAF [Suspect]
     Indication: HEART TRANSPLANT
     Dosage: SEE IMAGE
     Route: 048
     Dates: start: 20030525
  6. CELLCEPT [Concomitant]
  7. PREDNISONE [Concomitant]
  8. VALCYTE [Concomitant]
  9. BACTRIM [Concomitant]

REACTIONS (18)
  - AMMONIA INCREASED [None]
  - ANAEMIA [None]
  - CATHETER RELATED INFECTION [None]
  - DRUG TOXICITY [None]
  - DYSARTHRIA [None]
  - HAEMODIALYSIS [None]
  - HEPATIC FAILURE [None]
  - MARKEDLY REDUCED DIETARY INTAKE [None]
  - MENTAL STATUS CHANGES [None]
  - MULTI-ORGAN FAILURE [None]
  - PNEUMONIA [None]
  - RENAL FAILURE ACUTE [None]
  - RESPIRATORY DISTRESS [None]
  - RESPIRATORY FAILURE [None]
  - SEPSIS [None]
  - SKIN DISORDER [None]
  - URINARY TRACT INFECTION BACTERIAL [None]
  - URINE OUTPUT INCREASED [None]
